FAERS Safety Report 13057737 (Version 5)
Quarter: 2017Q1

REPORT INFORMATION
  Report Type: Spontaneous
  Country: US (occurrence: US)
  Receive Date: 20161223
  Receipt Date: 20170112
  Transmission Date: 20170428
  Serious: No
  Sender: FDA-Public Use
  Company Number: ALCN2016US008836

PATIENT

DRUGS (4)
  1. VORICONAZOLE. [Suspect]
     Active Substance: VORICONAZOLE
     Dosage: UNK
     Route: 047
     Dates: start: 20161104
  2. VORICONAZOLE. [Suspect]
     Active Substance: VORICONAZOLE
     Dosage: UNK
     Route: 047
     Dates: start: 20161110
  3. VORICONAZOLE. [Suspect]
     Active Substance: VORICONAZOLE
     Indication: EYE INFECTION FUNGAL
     Dosage: UNK
     Route: 047
     Dates: start: 20161028
  4. NATAMYCIN [Suspect]
     Active Substance: NATAMYCIN
     Indication: EYE INFECTION FUNGAL
     Route: 047

REACTIONS (1)
  - Drug ineffective [Unknown]
